FAERS Safety Report 13737414 (Version 1)
Quarter: 2017Q3

REPORT INFORMATION
  Report Type: Spontaneous
  Country: US (occurrence: US)
  Receive Date: 20170710
  Receipt Date: 20170710
  Transmission Date: 20171127
  Serious: No
  Sender: FDA-Public Use
  Company Number: US-LEXICON PHARMACEUTICALS, INC-17-1606-00357

PATIENT
  Age: 73 Year
  Sex: Male

DRUGS (18)
  1. COREG [Concomitant]
     Active Substance: CARVEDILOL
  2. LISINOPRIL. [Concomitant]
     Active Substance: LISINOPRIL
  3. TELOTRISTAT ETHYL [Suspect]
     Active Substance: TELOTRISTAT ETHYL
     Indication: CARCINOID TUMOUR OF THE SMALL BOWEL
     Route: 048
     Dates: start: 20170512
  4. XELODA [Concomitant]
     Active Substance: CAPECITABINE
  5. MINOXIDIL. [Concomitant]
     Active Substance: MINOXIDIL
  6. AMLODIPINE [Concomitant]
     Active Substance: AMLODIPINE BESYLATE
  7. ACETAMIN [Concomitant]
     Active Substance: ACETAMINOPHEN
  8. TEMODAR [Concomitant]
     Active Substance: TEMOZOLOMIDE
  9. SOMATULINE DEPOT [Concomitant]
     Active Substance: LANREOTIDE ACETATE
  10. ALDACTONE [Concomitant]
     Active Substance: SPIRONOLACTONE
  11. TELOTRISTAT ETHYL [Suspect]
     Active Substance: TELOTRISTAT ETHYL
     Indication: NEUROENDOCRINE TUMOUR
  12. HEPARIN [Concomitant]
     Active Substance: HEPARIN SODIUM
  13. PRILOSEC [Concomitant]
     Active Substance: OMEPRAZOLE MAGNESIUM
  14. LOMOTIL [Concomitant]
     Active Substance: ATROPINE SULFATE\DIPHENOXYLATE HYDROCHLORIDE
  15. EMLA [Concomitant]
     Active Substance: LIDOCAINE\PRILOCAINE
  16. SANDOSTATIN [Concomitant]
     Active Substance: OCTREOTIDE ACETATE
  17. ZOFRAN [Concomitant]
     Active Substance: ONDANSETRON HYDROCHLORIDE
  18. SODIUM CHLORIDE. [Concomitant]
     Active Substance: SODIUM CHLORIDE

REACTIONS (1)
  - Vertigo [Unknown]

NARRATIVE: CASE EVENT DATE: 201705
